FAERS Safety Report 5406939-2 (Version None)
Quarter: 2007Q3

REPORT INFORMATION
  Report Type: 
  Country: None (occurrence: None)
  Receive Date: 20070803
  Receipt Date: 20070803
  Transmission Date: 20080115
  Serious: Yes (Hospitalization)
  Sender: FDA-Public Use
  Company Number: None

PATIENT
  Age: 63 Year
  Sex: Female
  Weight: 72.5755 kg

DRUGS (1)
  1. AMBIEN CR [Suspect]
     Indication: SPINAL DISORDER
     Dosage: 1
     Dates: start: 20070108, end: 20070624

REACTIONS (4)
  - CONVULSION [None]
  - DISORIENTATION [None]
  - GLOBAL AMNESIA [None]
  - IMPAIRED DRIVING ABILITY [None]
